FAERS Safety Report 8831468 (Version 1)
Quarter: 2012Q4

REPORT INFORMATION
  Report Type: 
  Country: US (occurrence: US)
  Receive Date: 20121009
  Receipt Date: 20121009
  Transmission Date: 20130627
  Serious: No
  Sender: FDA-Public Use
  Company Number: US-009507513-1210USA002688

PATIENT
  Age: 37 Year
  Sex: Female

DRUGS (1)
  1. GANIRELIX ACETATE INJECTION [Suspect]
     Indication: OVULATION INDUCTION
     Dosage: 250 Microgram, qd
     Route: 058
     Dates: start: 20120919

REACTIONS (3)
  - Application site bruise [Recovered/Resolved]
  - Underdose [Unknown]
  - Product quality issue [Unknown]
